FAERS Safety Report 5137241-4 (Version None)
Quarter: 2006Q4

REPORT INFORMATION
  Report Type: 
  Country: None (occurrence: None)
  Receive Date: 20061030
  Receipt Date: 20050926
  Transmission Date: 20070319
  Serious: No
  Sender: FDA-Public Use
  Company Number: US-GLAXOSMITHKLINE-A0575895A

PATIENT
  Age: 47 Year
  Sex: Female
  Weight: 57.3 kg

DRUGS (2)
  1. ADVAIR HFA [Suspect]
     Indication: ASTHMA
     Dosage: 1PUFF TWICE PER DAY
     Route: 055
     Dates: start: 20050913, end: 20050916
  2. SINGULAIR [Concomitant]

REACTIONS (12)
  - ARTHRALGIA [None]
  - DISABILITY [None]
  - DISTURBANCE IN ATTENTION [None]
  - DIZZINESS [None]
  - HEADACHE [None]
  - HEART RATE INCREASED [None]
  - MYALGIA [None]
  - PAIN [None]
  - SINUS HEADACHE [None]
  - SPEECH DISORDER [None]
  - TREMOR [None]
  - VEIN PAIN [None]
